FAERS Safety Report 7610252-2 (Version None)
Quarter: 2011Q3

REPORT INFORMATION
  Report Type: 
  Country: None (occurrence: None)
  Receive Date: 20110713
  Receipt Date: 20110713
  Transmission Date: 20111222
  Serious: Yes (Other)
  Sender: FDA-Public Use
  Company Number: None

PATIENT
  Sex: Male
  Weight: 78.5 kg

DRUGS (1)
  1. CEFAZOLIN [Suspect]
     Indication: BACTERAEMIA
     Dosage: CEFAZOLIN 2000 MG IV
     Route: 042
     Dates: start: 20070904

REACTIONS (2)
  - INFUSION RELATED REACTION [None]
  - VOMITING [None]
